FAERS Safety Report 8124492-X (Version None)
Quarter: 2012Q1

REPORT INFORMATION
  Report Type: 
  Country: None (occurrence: None)
  Receive Date: 20120209
  Receipt Date: 20120130
  Transmission Date: 20120608
  Serious: Yes (Life-Threatening, Hospitalization)
  Sender: FDA-Public Use
  Company Number: US-ELI_LILLY_AND_COMPANY-US201112007254

PATIENT
  Age: 37 Year
  Sex: Male

DRUGS (2)
  1. FORTEO [Suspect]
     Indication: OSTEOPOROSIS
     Dosage: UNK UNK, OTHER
     Dates: start: 20111115, end: 20111128
  2. FORTEO [Suspect]
     Dosage: UNK UNK, OTHER
     Dates: start: 20120126

REACTIONS (4)
  - MECHANICAL VENTILATION [None]
  - AORTIC SURGERY [None]
  - HAEMOPTYSIS [None]
  - ABASIA [None]
